FAERS Safety Report 23765390 (Version 1)
Quarter: 2024Q2

REPORT INFORMATION
  Report Type: Report from Study
  Country: GR (occurrence: GR)
  Receive Date: 20240420
  Receipt Date: 20240420
  Transmission Date: 20240716
  Serious: Yes (Hospitalization)
  Sender: FDA-Public Use
  Company Number: GR-ABBVIE-5725799

PATIENT
  Sex: Male

DRUGS (2)
  1. CARBIDOPA\LEVODOPA [Suspect]
     Active Substance: CARBIDOPA\LEVODOPA
     Indication: Parkinson^s disease
     Dosage: MORNING DOSE: 9.0ML; CONTINUOUS RATE: 2.4ML/H; EXTRA DOSE: 1.0ML
     Route: 050
     Dates: start: 20230331
  2. CARBIDOPA\LEVODOPA [Suspect]
     Active Substance: CARBIDOPA\LEVODOPA

REACTIONS (3)
  - Oxygen saturation decreased [Unknown]
  - Pneumonia [Not Recovered/Not Resolved]
  - Unintentional medical device removal [Unknown]
